FAERS Safety Report 23166596 (Version 3)
Quarter: 2024Q3

REPORT INFORMATION
  Report Type: Spontaneous
  Country: US (occurrence: US)
  Receive Date: 20231109
  Receipt Date: 20240821
  Transmission Date: 20241017
  Serious: Yes (Other)
  Sender: PFIZER
  Company Number: US-PFIZER INC-PV202300182949

PATIENT
  Age: 70 Year
  Sex: Female
  Weight: 109.7 kg

DRUGS (1)
  1. IBRANCE [Suspect]
     Active Substance: PALBOCICLIB
     Dosage: 125MG, TAKE 1 TAB DAILY, DAYS 1-21 OF A 28 DAY CYCLE

REACTIONS (2)
  - Eye disorder [Unknown]
  - Cough [Unknown]
